FAERS Safety Report 8724817 (Version 2)
Quarter: 2015Q2

REPORT INFORMATION
  Report Type: Report from Study
  Country: US (occurrence: US)
  Receive Date: 20120815
  Receipt Date: 20150402
  Transmission Date: 20150821
  Serious: Yes (Hospitalization)
  Sender: FDA-Public Use
  Company Number: US-ROCHE-1099928

PATIENT
  Sex: Male

DRUGS (9)
  1. HEPARIN [Concomitant]
     Active Substance: HEPARIN SODIUM
     Route: 065
  2. ASPIRIN. [Concomitant]
     Active Substance: ASPIRIN
  3. MORPHINE [Concomitant]
     Active Substance: MORPHINE
     Route: 042
  4. ACTIVASE [Suspect]
     Active Substance: ALTEPLASE
     Indication: ACUTE MYOCARDIAL INFARCTION
  5. QUINIDINE [Concomitant]
     Active Substance: QUINIDINE
     Route: 065
  6. ACTIVASE [Suspect]
     Active Substance: ALTEPLASE
     Indication: VENTRICULAR TACHYCARDIA
  7. NITROGLYCERIN. [Concomitant]
     Active Substance: NITROGLYCERIN
  8. HEPARIN [Concomitant]
     Active Substance: HEPARIN SODIUM
     Route: 065
  9. ACTIVASE [Suspect]
     Active Substance: ALTEPLASE
     Indication: ARTERIOSCLEROSIS
     Dosage: OVER 3 HOURS
     Route: 042

REACTIONS (8)
  - Chest pain [Unknown]
  - Ventricular extrasystoles [Unknown]
  - Ventricular tachycardia [Unknown]
  - Hypovolaemia [Unknown]
  - Hyperhidrosis [Unknown]
  - Arthralgia [Unknown]
  - Haemorrhoids [Unknown]
  - Asthenia [Unknown]
